FAERS Safety Report 5366331-6 (Version None)
Quarter: 2007Q2

REPORT INFORMATION
  Report Type: 
  Country: None (occurrence: None)
  Receive Date: 20070620
  Receipt Date: 20070620
  Transmission Date: 20071010
  Serious: No
  Sender: FDA-Public Use
  Company Number: None

PATIENT
  Age: 67 Year
  Sex: Male
  Weight: 122.4712 kg

DRUGS (1)
  1. JANUVIA [Suspect]
     Indication: BLOOD GLUCOSE INCREASED
     Dosage: 25MG DAILY PO
     Route: 048
     Dates: start: 20070606, end: 20070614

REACTIONS (6)
  - ADVERSE DRUG REACTION [None]
  - DRUG INEFFECTIVE [None]
  - GAIT DISTURBANCE [None]
  - HYPERAESTHESIA [None]
  - INADEQUATE ANALGESIA [None]
  - PAIN IN EXTREMITY [None]
